FAERS Safety Report 8468155-X (Version None)
Quarter: 2012Q2

REPORT INFORMATION
  Report Type: 
  Country: None (occurrence: None)
  Receive Date: 20120626
  Receipt Date: 20120622
  Transmission Date: 20120825
  Serious: Yes (Hospitalization, Other)
  Sender: FDA-Public Use
  Company Number: US-MERCK-1106USA00664

PATIENT
  Age: 68 Year
  Sex: Female
  Weight: 70 kg

DRUGS (11)
  1. CORTICOSTEROIDS (UNSPECIFIED) [Concomitant]
     Route: 065
     Dates: start: 20090101, end: 20090801
  2. LEVOXYL [Concomitant]
     Indication: THYROID DISORDER
     Route: 065
     Dates: start: 20010101, end: 20110701
  3. ALENDRONATE SODIUM [Suspect]
     Indication: OSTEOPOROSIS
     Route: 048
     Dates: start: 20091201, end: 20100501
  4. FOSAMAX [Suspect]
     Route: 048
     Dates: start: 20020101, end: 20080606
  5. FOSAMAX [Suspect]
     Route: 048
     Dates: start: 20050115
  6. CALCIUM (UNSPECIFIED) AND VITAMINS (UNSPECIFIED) [Concomitant]
     Route: 065
     Dates: start: 19990101, end: 20110701
  7. CRANBERRY [Concomitant]
     Route: 065
     Dates: start: 19990101, end: 20110701
  8. FOSAMAX [Suspect]
     Indication: OSTEOPOROSIS
     Route: 048
     Dates: start: 20020101, end: 20090601
  9. ASCORBIC ACID [Concomitant]
     Route: 065
     Dates: start: 19990101, end: 20110701
  10. ACIPHEX [Concomitant]
     Route: 065
     Dates: start: 19990101, end: 20090101
  11. RECLAST [Concomitant]
     Indication: OSTEOPOROSIS
     Route: 048
     Dates: start: 20100101, end: 20101001

REACTIONS (41)
  - BACK PAIN [None]
  - DIZZINESS [None]
  - VERTIGO [None]
  - INTERVERTEBRAL DISC DEGENERATION [None]
  - FALL [None]
  - HAEMATURIA [None]
  - ARTERIOSCLEROSIS [None]
  - LOSS OF CONSCIOUSNESS [None]
  - OESTROGEN DEFICIENCY [None]
  - LUMBAR RADICULOPATHY [None]
  - VOMITING [None]
  - ANXIETY [None]
  - PYELONEPHRITIS [None]
  - ARTHRITIS [None]
  - SCOLIOSIS [None]
  - VENTRICULAR EXTRASYSTOLES [None]
  - MUSCLE SPASMS [None]
  - SKIN DISORDER [None]
  - FEMUR FRACTURE [None]
  - GALLBLADDER DISORDER [None]
  - HERPES ZOSTER [None]
  - MUSCLE STRAIN [None]
  - SPONDYLOLISTHESIS [None]
  - SPINAL COMPRESSION FRACTURE [None]
  - INTERVERTEBRAL DISC PROTRUSION [None]
  - SEPSIS [None]
  - OSTEOARTHRITIS [None]
  - VERTEBRAL FORAMINAL STENOSIS [None]
  - LABYRINTHITIS [None]
  - KYPHOSCOLIOSIS [None]
  - AORTIC DISORDER [None]
  - SPINAL DISORDER [None]
  - SCIATICA [None]
  - MUSCLE TWITCHING [None]
  - STRESS [None]
  - CYSTITIS [None]
  - ARTHRALGIA [None]
  - ARTHROPOD BITE [None]
  - THYROID DISORDER [None]
  - SPINAL COLUMN STENOSIS [None]
  - SPINAL OSTEOARTHRITIS [None]
